FAERS Safety Report 20536136 (Version 1)
Quarter: 2022Q1

REPORT INFORMATION
  Report Type: Spontaneous
  Country: US (occurrence: US)
  Receive Date: 20220302
  Receipt Date: 20220302
  Transmission Date: 20220423
  Serious: No
  Sender: FDA-Public Use
  Company Number: US-SA-SAC20220223000748

PATIENT
  Age: 43 Year
  Sex: Male
  Weight: 80.726 kg

DRUGS (15)
  1. DUPIXENT [Suspect]
     Active Substance: DUPILUMAB
     Indication: Dermatitis atopic
     Dosage: 300 MG, QOW
     Route: 058
     Dates: start: 202105
  2. QNASL [Concomitant]
     Active Substance: BECLOMETHASONE DIPROPIONATE
  3. KLONOPIN [Concomitant]
     Active Substance: CLONAZEPAM
  4. BEPREVE [Concomitant]
     Active Substance: BEPOTASTINE BESILATE
  5. ZYRTEC [Concomitant]
     Active Substance: CETIRIZINE HYDROCHLORIDE
  6. HYDROCHLOROTHIAZIDE [Concomitant]
     Active Substance: HYDROCHLOROTHIAZIDE
  7. ADVIL [Concomitant]
     Active Substance: IBUPROFEN
  8. DESONIDE [Concomitant]
     Active Substance: DESONIDE
  9. TRIAMCINOLONE ACETONIDE [Concomitant]
     Active Substance: TRIAMCINOLONE ACETONIDE
  10. MOMETASONE FUROATE [Concomitant]
     Active Substance: MOMETASONE FUROATE
  11. CHOLECALCIFEROL [Concomitant]
     Active Substance: CHOLECALCIFEROL
  12. MODERNA COVID-19 VACCINE [Concomitant]
     Active Substance: ELASOMERAN
  13. AVEENO [Concomitant]
     Active Substance: DIMETHICONE\HOMOSALATE\OCTINOXATE\OCTISALATE\TITANIUM DIOXIDE
  14. CETAPHIL [CETYL ALCOHOL;SODIUM LAURYL SULFATE] [Concomitant]
  15. MAGNESIUM [Concomitant]
     Active Substance: MAGNESIUM

REACTIONS (5)
  - Skin exfoliation [Unknown]
  - Eyelid margin crusting [Unknown]
  - Conjunctivitis [Unknown]
  - Eye pruritus [Unknown]
  - Dry eye [Unknown]

NARRATIVE: CASE EVENT DATE: 20211201
